FAERS Safety Report 4624350-9 (Version None)
Quarter: 2005Q1

REPORT INFORMATION
  Report Type: 
  Country: None (occurrence: None)
  Receive Date: 20050330
  Receipt Date: 20050330
  Transmission Date: 20050727
  Serious: Yes (Other)
  Sender: FDA-Public Use
  Company Number: None

PATIENT
  Age: 55 Year
  Sex: Female
  Weight: 102.9665 kg

DRUGS (7)
  1. WARFARIN SODIUM [Suspect]
     Indication: CEREBROVASCULAR ACCIDENT
     Dosage: 2 MG
     Dates: start: 20041001
  2. WARFARIN SODIUM [Suspect]
     Indication: CEREBROVASCULAR ACCIDENT
     Dosage: 2 MG
     Dates: start: 20041117
  3. EFFEXOR XR [Concomitant]
  4. NORVASC [Concomitant]
  5. LIPITOR [Concomitant]
  6. MECLIZINE [Concomitant]
  7. THEOPHYLLINE [Concomitant]

REACTIONS (4)
  - ERYTHEMA [None]
  - PHARMACEUTICAL PRODUCT COMPLAINT [None]
  - RASH PAPULAR [None]
  - URTICARIA [None]
